FAERS Safety Report 8955316 (Version 1)
Quarter: 2012Q4

REPORT INFORMATION
  Report Type: 
  Country: CA (occurrence: CA)
  Receive Date: 20121207
  Receipt Date: 20121207
  Transmission Date: 20130627
  Serious: Yes (Hospitalization)
  Sender: FDA-Public Use
  Company Number: CA-ASTRAZENECA-2012SE88512

PATIENT
  Age: 60 Year
  Sex: Male

DRUGS (2)
  1. TICAGRELOR [Suspect]
     Route: 048
  2. RAMIPRIL [Concomitant]

REACTIONS (1)
  - Pruritus allergic [Recovered/Resolved]
